FAERS Safety Report 4536720-8 (Version None)
Quarter: 2004Q4

REPORT INFORMATION
  Report Type: 
  Country: None (occurrence: None)
  Receive Date: 20041222
  Receipt Date: 20041222
  Transmission Date: 20050328
  Serious: Yes (Life-Threatening, Hospitalization)
  Sender: FDA-Public Use
  Company Number: None

PATIENT
  Age: 32 Year
  Sex: Female
  Weight: 72.5755 kg

DRUGS (2)
  1. OMNIPAQUE 300 [Suspect]
     Indication: SCAN WITH CONTRAST
     Dosage: 125 ML IV OTO
     Route: 042
     Dates: start: 20040921
  2. ALBUTEROL [Concomitant]

REACTIONS (7)
  - ACUTE RESPIRATORY FAILURE [None]
  - ANAPHYLACTIC REACTION [None]
  - ANGIONEUROTIC OEDEMA [None]
  - CONTRAST MEDIA REACTION [None]
  - DYSPNOEA [None]
  - LARYNGEAL OEDEMA [None]
  - STRIDOR [None]
